FAERS Safety Report 21159537 (Version 12)
Quarter: 2023Q1

REPORT INFORMATION
  Report Type: Report from Study
  Country: JP (occurrence: JP)
  Receive Date: 20220802
  Receipt Date: 20230220
  Transmission Date: 20230417
  Serious: Yes (Life-Threatening, Hospitalization, Other)
  Sender: FDA-Public Use
  Company Number: JP-NOVARTISPH-NVSJ2022JP092358

PATIENT
  Age: 9 Month
  Sex: Male
  Weight: 6.76 kg

DRUGS (22)
  1. ZOLGENSMA [Suspect]
     Active Substance: ONASEMNOGENE ABEPARVOVEC-XIOI
     Indication: Spinal muscular atrophy
     Dosage: 38.5 ML (1.1?E14VG/KG)
     Route: 041
     Dates: start: 20220607, end: 20220607
  2. MIDAZOLAM HYDROCHLORIDE [Suspect]
     Active Substance: MIDAZOLAM HYDROCHLORIDE
     Indication: Product used for unknown indication
     Dosage: 1-2 MG/HR
     Route: 065
     Dates: start: 20220727
  3. AMPICILLIN [Suspect]
     Active Substance: AMPICILLIN
     Indication: Product used for unknown indication
     Dosage: 350 MG, TID
     Route: 065
     Dates: start: 20220725, end: 20220727
  4. MEROPENEM [Suspect]
     Active Substance: MEROPENEM
     Indication: Product used for unknown indication
     Dosage: 150 MG, TID
     Route: 065
     Dates: start: 20220727
  5. FAMOTIDINE [Suspect]
     Active Substance: FAMOTIDINE
     Indication: Product used for unknown indication
     Dosage: 3 MG, BID
     Route: 065
     Dates: start: 20220727
  6. CALCIUM GLUCONATE [Suspect]
     Active Substance: CALCIUM GLUCONATE
     Indication: Product used for unknown indication
     Dosage: 5 ML
     Route: 065
     Dates: start: 20220728
  7. CARBOCYSTEINE [Concomitant]
     Active Substance: CARBOCYSTEINE
     Indication: Product used for unknown indication
     Dosage: 210 MG
     Route: 065
     Dates: start: 20220726
  8. PREDNISOLONE [Concomitant]
     Active Substance: PREDNISOLONE
     Indication: Product used for unknown indication
     Dosage: 1 MG/KG
     Route: 048
     Dates: start: 20220606, end: 20220707
  9. PREDNISOLONE [Concomitant]
     Active Substance: PREDNISOLONE
     Dosage: 0.5 MG/KG
     Route: 048
     Dates: start: 20220708, end: 20220721
  10. PREDNISOLONE [Concomitant]
     Active Substance: PREDNISOLONE
     Dosage: 0.25 MG/KG
     Route: 048
     Dates: start: 20220722, end: 20220727
  11. PRANLUKAST [Concomitant]
     Active Substance: PRANLUKAST
     Indication: Product used for unknown indication
     Dosage: 50 MG
     Route: 065
     Dates: start: 20220328
  12. MUCOSAL [Concomitant]
     Indication: Product used for unknown indication
     Dosage: 6 MG
     Route: 065
     Dates: start: 20220329
  13. ERYTHROCIN [Concomitant]
     Active Substance: ERYTHROMYCIN LACTOBIONATE
     Indication: Product used for unknown indication
     Dosage: 70 MG
     Route: 065
     Dates: start: 20220407
  14. ALBUTEROL SULFATE [Concomitant]
     Active Substance: ALBUTEROL SULFATE
     Indication: Product used for unknown indication
     Dosage: 0.3 ML, Q3H
     Dates: start: 20220723
  15. MENATETRENONE [Concomitant]
     Active Substance: MENATETRENONE
     Indication: Product used for unknown indication
     Dosage: 6 MG
     Route: 065
     Dates: start: 20220728, end: 20220728
  16. DEXAMETHASONE SODIUM PHOSPHATE [Concomitant]
     Active Substance: DEXAMETHASONE SODIUM PHOSPHATE
     Indication: Product used for unknown indication
     Dosage: 3.3 MG
     Route: 041
     Dates: start: 20220821
  17. DEXAMETHASONE SODIUM PHOSPHATE [Concomitant]
     Active Substance: DEXAMETHASONE SODIUM PHOSPHATE
     Dosage: 3.3 MG, TID
     Route: 041
     Dates: start: 20220822
  18. HYDROCORTISONE [Concomitant]
     Active Substance: HYDROCORTISONE
     Indication: Product used for unknown indication
     Dosage: 50 MG
     Route: 065
  19. METHYLPREDNISOLONE [Concomitant]
     Active Substance: METHYLPREDNISOLONE
     Indication: Product used for unknown indication
     Dosage: 4 MG/KG
     Route: 065
  20. METHYLPREDNISOLONE [Concomitant]
     Active Substance: METHYLPREDNISOLONE
     Dosage: 3 MG/KG
     Route: 065
  21. METHYLPREDNISOLONE [Concomitant]
     Active Substance: METHYLPREDNISOLONE
     Dosage: 2 MG/KG
     Route: 065
  22. METHYLPREDNISOLONE [Concomitant]
     Active Substance: METHYLPREDNISOLONE
     Dosage: 1 MG/KG
     Route: 065

REACTIONS (35)
  - Multiple organ dysfunction syndrome [Recovered/Resolved]
  - Electrolyte imbalance [Unknown]
  - General physical health deterioration [Unknown]
  - Acidosis [Unknown]
  - Amylase increased [Recovered/Resolved]
  - Acute hepatic failure [Recovered/Resolved]
  - Vomiting [Recovered/Resolved]
  - Pyrexia [Unknown]
  - Nausea [Unknown]
  - Blood lactate dehydrogenase increased [Unknown]
  - Alanine aminotransferase increased [Recovered/Resolved]
  - Serum ferritin increased [Unknown]
  - Coagulopathy [Unknown]
  - International normalised ratio increased [Unknown]
  - Pneumonia respiratory syncytial viral [Recovered/Resolved]
  - Respiratory failure [Recovering/Resolving]
  - Pleural effusion [Unknown]
  - Respiratory disorder [Recovered/Resolved]
  - Breath sounds abnormal [Unknown]
  - Prolonged expiration [Unknown]
  - Hypoxia [Unknown]
  - Cough [Unknown]
  - Sputum increased [Unknown]
  - Ischaemic hepatitis [Recovered/Resolved]
  - Hepatic function abnormal [Recovered/Resolved]
  - Atelectasis [Recovered/Resolved]
  - Concomitant disease aggravated [Recovered/Resolved]
  - Troponin I increased [Recovered/Resolved]
  - Rhinovirus infection [Recovered/Resolved]
  - Enterovirus infection [Recovered/Resolved]
  - Tachyarrhythmia [Unknown]
  - Dyspnoea [Unknown]
  - Hypotension [Unknown]
  - Hepatic function abnormal [Recovered/Resolved]
  - Peripheral coldness [Unknown]

NARRATIVE: CASE EVENT DATE: 20220610
